FAERS Safety Report 12836730 (Version 1)
Quarter: 2016Q4

REPORT INFORMATION
  Report Type: Report from Study
  Country: US (occurrence: US)
  Receive Date: 20161011
  Receipt Date: 20161011
  Transmission Date: 20170207
  Serious: Yes (Other)
  Sender: FDA-Public Use
  Company Number: US-PFIZER INC-2016468216

PATIENT
  Age: 77 Year
  Sex: Male

DRUGS (6)
  1. ALPHA-METHYLDOPA [Concomitant]
     Active Substance: METHYLDOPA
     Indication: ACUTE MYOCARDIAL INFARCTION
     Dosage: UNK
  2. NITROGLYCERIN. [Suspect]
     Active Substance: NITROGLYCERIN
     Dosage: 17.6 UG/MIN
     Route: 041
  3. THIAZIDE [Concomitant]
     Active Substance: UNSPECIFIED INGREDIENT
  4. DIGITALIS [Concomitant]
     Active Substance: DIGITALIS
  5. NITROGLYCERIN. [Suspect]
     Active Substance: NITROGLYCERIN
     Dosage: 5 UG/MIN
     Route: 041
  6. NITROGLYCERIN. [Suspect]
     Active Substance: NITROGLYCERIN
     Dosage: 7 UG/MIN
     Route: 041

REACTIONS (3)
  - Hypotension [Recovered/Resolved]
  - Sinus bradycardia [Recovered/Resolved]
  - Pulmonary arterial pressure decreased [Recovered/Resolved]
